FAERS Safety Report 8163836-X (Version None)
Quarter: 2012Q1

REPORT INFORMATION
  Report Type: 
  Country: None (occurrence: None)
  Receive Date: 20120224
  Receipt Date: 20120221
  Transmission Date: 20120608
  Serious: Yes (Life-Threatening, Hospitalization, Other)
  Sender: FDA-Public Use
  Company Number: PHEH2012US001244

PATIENT
  Age: 14 Year
  Sex: Female

DRUGS (2)
  1. FOCALIN XR [Suspect]
     Dosage: 15 MG, QD
     Dates: start: 20101223, end: 20120109
  2. VYVANSE [Suspect]
     Dosage: UNK UKN, UNK

REACTIONS (7)
  - ATTENTION DEFICIT/HYPERACTIVITY DISORDER [None]
  - SUICIDAL IDEATION [None]
  - INTENTIONAL OVERDOSE [None]
  - HEADACHE [None]
  - ABDOMINAL DISCOMFORT [None]
  - MIGRAINE [None]
  - ANXIETY [None]
